FAERS Safety Report 21562114 (Version 2)
Quarter: 2022Q4

REPORT INFORMATION
  Report Type: Spontaneous
  Country: FR (occurrence: FR)
  Receive Date: 20221107
  Receipt Date: 20221117
  Transmission Date: 20230113
  Serious: Yes (Death)
  Sender: FDA-Public Use
  Company Number: None

PATIENT
  Age: 26 Year
  Sex: Female
  Weight: 78 kg

DRUGS (12)
  1. SUFENTANIL [Suspect]
     Active Substance: SUFENTANIL
     Indication: Epidural analgesia
     Dosage: 6 MILLILITER, QD
     Route: 008
     Dates: start: 20220308, end: 20220308
  2. SUFENTANIL [Suspect]
     Active Substance: SUFENTANIL
     Indication: Epidural analgesia
     Dosage: 6 MILLILITER
     Route: 008
     Dates: start: 20220308, end: 20220308
  3. SUFENTANIL [Suspect]
     Active Substance: SUFENTANIL
     Indication: Spinal anaesthesia
     Dosage: 110 MICROGRAM
     Route: 037
     Dates: start: 20220308, end: 20220308
  4. BUPIVACAINE [Suspect]
     Active Substance: BUPIVACAINE
     Indication: Spinal anaesthesia
     Dosage: 20 MG/4ML, QD, INTRA-SPINAL AMPOULE
     Route: 037
     Dates: start: 20220308, end: 20220308
  5. ROPIVACAINE [Suspect]
     Active Substance: ROPIVACAINE
     Indication: Epidural analgesia
     Dosage: 60 MILLILITER, QD
     Route: 008
     Dates: start: 20220308, end: 20220308
  6. OXYTOCIN [Suspect]
     Active Substance: OXYTOCIN
     Indication: Uterine hypotonus
     Dosage: UNKNOWN, QD
     Route: 042
     Dates: start: 20220308, end: 20220308
  7. SUFENTANIL [Suspect]
     Active Substance: SUFENTANIL
     Indication: Spinal anaesthesia
     Dosage: 110 MICROGRAM, QD
     Route: 037
     Dates: start: 20220308, end: 20220308
  8. XYLOCAINE [Suspect]
     Active Substance: LIDOCAINE HYDROCHLORIDE
     Indication: Epidural anaesthesia
     Dosage: 8 MILLILITER, QD, INJECTABLE VIAL
     Route: 008
     Dates: start: 20220308, end: 20220308
  9. NOREPINEPHRINE [Concomitant]
     Active Substance: NOREPINEPHRINE
     Indication: Circulatory collapse
     Dosage: UNK, QD
     Route: 042
     Dates: start: 20220308, end: 20220308
  10. PHENYLEPHRINE [Concomitant]
     Active Substance: PHENYLEPHRINE HYDROCHLORIDE
     Indication: Circulatory collapse
     Dosage: 200 MICROGRAM
     Route: 042
     Dates: start: 20220308, end: 20220308
  11. PHLOROGLUCINOL [Concomitant]
     Active Substance: PHLOROGLUCINOL
     Indication: Pain
     Dosage: 3 DOSAGE FORM
     Route: 042
     Dates: start: 20220308, end: 20220308
  12. EPHEDRINE [Concomitant]
     Active Substance: EPHEDRINE
     Indication: Hypotension
     Dosage: 27 MILLIGRAM
     Route: 042
     Dates: start: 20220308, end: 20220308

REACTIONS (2)
  - Cardio-respiratory arrest [Fatal]
  - Hypotension [Fatal]

NARRATIVE: CASE EVENT DATE: 20220308
